FAERS Safety Report 5989539-5 (Version None)
Quarter: 2008Q4

REPORT INFORMATION
  Report Type: 
  Country: None (occurrence: None)
  Receive Date: 20081208
  Receipt Date: 20081124
  Transmission Date: 20090506
  Serious: Yes (Hospitalization)
  Sender: FDA-Public Use
  Company Number: 8039964

PATIENT

DRUGS (1)
  1. KEPPRA [Suspect]
     Dosage: 500 MG 2/D

REACTIONS (1)
  - HOSPITALISATION [None]
